FAERS Safety Report 10173995 (Version 3)
Quarter: 2014Q3

REPORT INFORMATION
  Report Type: Report from Study
  Country: CA (occurrence: CA)
  Receive Date: 20140515
  Receipt Date: 20140902
  Transmission Date: 20150326
  Serious: Yes (Death, Hospitalization, Other)
  Sender: FDA-Public Use
  Company Number: CA-BRISTOL-MYERS SQUIBB COMPANY-19017680

PATIENT
  Age: 63 Year
  Sex: Male

DRUGS (1)
  1. ERBITUX [Suspect]
     Active Substance: CETUXIMAB
     Indication: COLORECTAL CANCER METASTATIC
     Dosage: INTER ON 16MAR13
     Route: 042
     Dates: start: 20110516

REACTIONS (10)
  - Death [Fatal]
  - Colostomy [Not Recovered/Not Resolved]
  - Blood pressure increased [Unknown]
  - Ureteric obstruction [Unknown]
  - Heart rate irregular [Unknown]
  - Small intestinal obstruction [Not Recovered/Not Resolved]
  - Blood count abnormal [Unknown]
  - Adverse event [Unknown]
  - Infection [Unknown]
  - Malaise [Unknown]

NARRATIVE: CASE EVENT DATE: 2013
